FAERS Safety Report 6178794-7 (Version None)
Quarter: 2009Q2

REPORT INFORMATION
  Report Type: 
  Country: None (occurrence: None)
  Receive Date: 20090504
  Receipt Date: 20090304
  Transmission Date: 20091009
  Serious: No
  Sender: FDA-Public Use
  Company Number: US-ALEXION-A200900186

PATIENT
  Sex: Male

DRUGS (4)
  1. SOLIRIS [Suspect]
     Indication: PAROXYSMAL NOCTURNAL HAEMOGLOBINURIA
     Dosage: 600 MG, QW
     Route: 042
     Dates: start: 20090123, end: 20090213
  2. SOLIRIS [Suspect]
     Dosage: 900 MG, Q2W
     Route: 042
     Dates: start: 20090220
  3. TYLENOL (CAPLET) [Concomitant]
     Indication: HEADACHE
     Dosage: UNK
     Route: 048
  4. NASONEX [Concomitant]
     Indication: NASAL CONGESTION
     Dosage: UNK
     Route: 045

REACTIONS (6)
  - DIZZINESS [None]
  - HAEMOGLOBIN DECREASED [None]
  - HAEMOGLOBINURIA [None]
  - HEADACHE [None]
  - INSOMNIA [None]
  - VOMITING [None]
